FAERS Safety Report 14393991 (Version 2)
Quarter: 2018Q1

REPORT INFORMATION
  Report Type: Spontaneous
  Country: JP (occurrence: JP)
  Receive Date: 20180116
  Receipt Date: 20180124
  Transmission Date: 20180509
  Serious: Yes (Hospitalization)
  Sender: FDA-Public Use
  Company Number: JP-OTSUKA-2018_000867

PATIENT

DRUGS (1)
  1. PLETAAL OD TABLETS 50MG [Suspect]
     Active Substance: CILOSTAZOL
     Indication: PRODUCT USED FOR UNKNOWN INDICATION
     Dosage: UNK
     Route: 048

REACTIONS (5)
  - Hospitalisation [Unknown]
  - Tachycardia [Unknown]
  - Palpitations [Recovered/Resolved]
  - Tachycardia [Recovered/Resolved]
  - Palpitations [Unknown]
